FAERS Safety Report 9782350 (Version 1)
Quarter: 2013Q4

REPORT INFORMATION
  Report Type: Spontaneous
  Country: IT (occurrence: IT)
  Receive Date: 20131226
  Receipt Date: 20131226
  Transmission Date: 20140711
  Serious: Yes (Hospitalization, Other)
  Sender: FDA-Public Use
  Company Number: IT-DRREDDYS-GER/ITL/13/0036582

PATIENT
  Age: 86 Year
  Sex: Female

DRUGS (1)
  1. LANSOPRAZOLE [Suspect]
     Indication: PRODUCT USED FOR UNKNOWN INDICATION
     Route: 048
     Dates: start: 20130617, end: 20130712

REACTIONS (6)
  - Asthenia [Recovering/Resolving]
  - Diarrhoea [Recovering/Resolving]
  - Hypokalaemic syndrome [Recovering/Resolving]
  - Hyponatraemic syndrome [Recovering/Resolving]
  - Vomiting [Recovering/Resolving]
  - Dystonia [Unknown]
